FAERS Safety Report 7718574-1 (Version None)
Quarter: 2011Q3

REPORT INFORMATION
  Report Type: 
  Country: None (occurrence: None)
  Receive Date: 20110830
  Receipt Date: 20110816
  Transmission Date: 20111222
  Serious: Yes (Other)
  Sender: FDA-Public Use
  Company Number: US-ELI_LILLY_AND_COMPANY-US201104006867

PATIENT
  Sex: Male

DRUGS (7)
  1. FORTEO [Suspect]
     Dosage: 20 UG, QD
     Route: 065
  2. ANTIBIOTICS [Concomitant]
  3. PROTONIX [Concomitant]
  4. FORTEO [Suspect]
     Dosage: 20 UG, QD
  5. FORTEO [Suspect]
     Dosage: 20 UG, QD
  6. FORTEO [Suspect]
     Indication: OSTEOPOROSIS
     Dosage: 20 UG, QD
     Route: 065
  7. SUCRALFATE [Concomitant]

REACTIONS (16)
  - BLOOD URINE PRESENT [None]
  - ABDOMINAL PAIN UPPER [None]
  - HAEMATOCHEZIA [None]
  - PROSTATIC OPERATION [None]
  - EROSIVE OESOPHAGITIS [None]
  - MEMORY IMPAIRMENT [None]
  - BIOPSY PROSTATE [None]
  - BACK PAIN [None]
  - FAECES HARD [None]
  - RECTAL HAEMORRHAGE [None]
  - DYSPEPSIA [None]
  - CONSTIPATION [None]
  - BLOOD CALCIUM INCREASED [None]
  - PROCEDURAL PAIN [None]
  - HAEMORRHOIDS [None]
  - STRESS [None]
